FAERS Safety Report 8977111 (Version 4)
Quarter: 2013Q2

REPORT INFORMATION
  Report Type: Spontaneous
  Country: US (occurrence: US)
  Receive Date: 20121220
  Receipt Date: 20130415
  Transmission Date: 20140414
  Serious: Yes (Hospitalization)
  Sender: FDA-Public Use
  Company Number: US-BIOGENIDEC-2012BI060248

PATIENT
  Age: 30 Year
  Sex: Female

DRUGS (31)
  1. TYSABRI [Suspect]
     Indication: MULTIPLE SCLEROSIS
     Route: 042
     Dates: start: 20121121
  2. ADDERALL [Concomitant]
  3. AMITRIPTYLINE [Concomitant]
  4. BUPROPION [Concomitant]
  5. PROZAC [Concomitant]
  6. NEURONTIN [Concomitant]
     Route: 048
  7. NEURONTIN [Concomitant]
     Route: 048
  8. STRATTERA [Concomitant]
  9. VITAMIN B12 [Concomitant]
  10. VITAMIN D [Concomitant]
  11. MULTIVITAMINS WITH MINERALS [Concomitant]
  12. TISANIDINE [Concomitant]
  13. ALPRAZOLAM [Concomitant]
  14. ALPRAZOLAM [Concomitant]
  15. BACLOFEN [Concomitant]
  16. SOMA [Concomitant]
  17. DIAZEPAM [Concomitant]
  18. COLACE [Concomitant]
     Route: 048
  19. DRISDOL [Concomitant]
  20. NUVARING [Concomitant]
  21. PEPCID [Concomitant]
     Route: 048
  22. COPAXONE [Concomitant]
     Route: 058
  23. NORCO [Concomitant]
  24. PERCOCET [Concomitant]
  25. LYRICA [Concomitant]
  26. SEROQUEL [Concomitant]
  27. TRIAMTERENE [Concomitant]
  28. HYDROCHLOROTHIAZIDE [Concomitant]
  29. VIIBRYD [Concomitant]
  30. TYLENOL [Concomitant]
  31. AMBIEN [Concomitant]

REACTIONS (7)
  - Multiple sclerosis relapse [Recovered/Resolved]
  - Head injury [Recovered/Resolved]
  - Visual impairment [Unknown]
  - Pain [Not Recovered/Not Resolved]
  - Loss of consciousness [Unknown]
  - Vein disorder [Not Recovered/Not Resolved]
  - Multiple sclerosis [Unknown]
